FAERS Safety Report 17374124 (Version 1)
Quarter: 2020Q1

REPORT INFORMATION
  Report Type: Spontaneous
  Country: US (occurrence: US)
  Receive Date: 20200204
  Receipt Date: 20200204
  Transmission Date: 20200409
  Serious: Yes (Other)
  Sender: FDA-Public Use
  Company Number: None

PATIENT
  Age: 87 Year
  Sex: Male
  Weight: 100 kg

DRUGS (22)
  1. ATORVASTATIN [Concomitant]
     Active Substance: ATORVASTATIN
  2. BORTEZOMIB. [Concomitant]
     Active Substance: BORTEZOMIB
  3. ELIQUIS [Concomitant]
     Active Substance: APIXABAN
  4. FINASTERIDE. [Concomitant]
     Active Substance: FINASTERIDE
  5. FUROSEMIDE. [Concomitant]
     Active Substance: FUROSEMIDE
  6. ONDANSETRON [Concomitant]
     Active Substance: ONDANSETRON
  7. TAMSULOSIN [Concomitant]
     Active Substance: TAMSULOSIN
  8. GABAPENTIN. [Concomitant]
     Active Substance: GABAPENTIN
  9. DEXAMETHASONE. [Concomitant]
     Active Substance: DEXAMETHASONE
  10. FOLIC ACID. [Concomitant]
     Active Substance: FOLIC ACID
  11. LETROZOLE. [Concomitant]
     Active Substance: LETROZOLE
  12. ALOXI [Concomitant]
     Active Substance: PALONOSETRON HYDROCHLORIDE
  13. MIRALAX [Concomitant]
     Active Substance: POLYETHYLENE GLYCOL 3350
  14. CALCIUIM 500 +D [Concomitant]
  15. CITALOPRAM [Concomitant]
     Active Substance: CITALOPRAM HYDROBROMIDE
  16. CYCLOPHOSPHAMIDE. [Concomitant]
     Active Substance: CYCLOPHOSPHAMIDE
  17. LUPRON [Concomitant]
     Active Substance: LEUPROLIDE ACETATE
  18. METOPROLOL. [Concomitant]
     Active Substance: METOPROLOL
  19. NINLARO [Suspect]
     Active Substance: IXAZOMIB CITRATE
     Indication: PLASMA CELL MYELOMA
     Dosage: ?          OTHER FREQUENCY:4MG ONCE WEEKLY;?
     Route: 048
     Dates: start: 20191112, end: 20200204
  20. ACYCLOVIR. [Concomitant]
     Active Substance: ACYCLOVIR
  21. ASPIRIN. [Concomitant]
     Active Substance: ASPIRIN
  22. LEVETIRACETAM. [Concomitant]
     Active Substance: LEVETIRACETAM

REACTIONS (1)
  - Disease progression [None]

NARRATIVE: CASE EVENT DATE: 20200204
